FAERS Safety Report 23059551 (Version 1)
Quarter: 2023Q4

REPORT INFORMATION
  Report Type: Spontaneous
  Country: US (occurrence: None)
  Receive Date: 20231012
  Receipt Date: 20231012
  Transmission Date: 20240109
  Serious: Yes (Other)
  Sender: FDA-Public Use
  Company Number: None

PATIENT
  Age: 73 Year
  Sex: Female
  Weight: 75.15 kg

DRUGS (1)
  1. OZEMPIC [Suspect]
     Active Substance: SEMAGLUTIDE
     Indication: Type 2 diabetes mellitus
     Dates: start: 20230823

REACTIONS (8)
  - Nausea [None]
  - Vomiting [None]
  - Vomiting [None]
  - Hypophagia [None]
  - Gastrooesophageal reflux disease [None]
  - Dysphonia [None]
  - Choking [None]
  - Constipation [None]

NARRATIVE: CASE EVENT DATE: 20230927
